FAERS Safety Report 5728760-8 (Version None)
Quarter: 2008Q2

REPORT INFORMATION
  Report Type: 
  Country: None (occurrence: None)
  Receive Date: 20080430
  Receipt Date: 20080423
  Transmission Date: 20081010
  Serious: Yes (Death, Other)
  Sender: FDA-Public Use
  Company Number: 2008JP001134

PATIENT
  Age: 10 Year
  Sex: Male

DRUGS (8)
  1. PROGRAF [Suspect]
     Indication: BONE MARROW TRANSPLANT
  2. INFLIXIMAB(INFLIXIMAB) FORMULATION UNKNOWN [Suspect]
     Dosage: 5 MG/KG,
  3. PREDNISOLONE [Concomitant]
  4. TRANILAST (TRANILAST) FORMULATION UNKNOWN [Concomitant]
  5. MYCOPHENOLATE MOFETIL [Concomitant]
  6. THALIDOMIDE (THALIDOMIDE) FORMULATION UNKNOWN [Concomitant]
  7. OCTREOTIDE (OCTREOTIDE) FORMULATION UNKNOWN [Concomitant]
  8. ETOPOSIDE (ETOPOSIDE) FORMULATION UNKNOWN [Concomitant]

REACTIONS (6)
  - BLOOD LACTATE DEHYDROGENASE INCREASED [None]
  - HISTIOCYTOSIS HAEMATOPHAGIC [None]
  - INFECTION [None]
  - PANCREATITIS [None]
  - PYREXIA [None]
  - RESPIRATORY FAILURE [None]
